FAERS Safety Report 13230941 (Version 1)
Quarter: 2017Q1

REPORT INFORMATION
  Report Type: Spontaneous
  Country: FR (occurrence: FR)
  Receive Date: 20170214
  Receipt Date: 20170214
  Transmission Date: 20170428
  Serious: Yes (Hospitalization, Other)
  Sender: FDA-Public Use
  Company Number: FR-ELI_LILLY_AND_COMPANY-FR201702001889

PATIENT
  Age: 51 Year
  Sex: Female

DRUGS (6)
  1. OPTIVE [Concomitant]
     Active Substance: CARBOXYMETHYLCELLULOSE SODIUM\GLYCERIN
     Dosage: 2 DF, QD
     Route: 065
  2. TIMOPTOL [Concomitant]
     Active Substance: TIMOLOL
     Dosage: 1 GTT, QD
     Route: 047
  3. CYMBALTA [Suspect]
     Active Substance: DULOXETINE HYDROCHLORIDE
     Indication: NEURALGIA
     Dosage: 60 MG, QD
     Route: 048
     Dates: start: 20160929, end: 20161003
  4. DEPAKINE CHRONO [Concomitant]
     Active Substance: VALPROATE SODIUM
     Dosage: 500 MG, BID
     Route: 048
     Dates: end: 20170209
  5. SERESTA [Concomitant]
     Active Substance: OXAZEPAM
     Dosage: 10 MG, PRN
     Route: 065
  6. LACRIFLUID [Concomitant]
     Active Substance: CARBOMER
     Dosage: 1 GTT, QD, 1-3 TIMES
     Route: 065

REACTIONS (7)
  - Chest discomfort [Unknown]
  - Cold sweat [Unknown]
  - Hyponatraemia [Recovered/Resolved]
  - Palpitations [Unknown]
  - Mood altered [Unknown]
  - Polymyalgia rheumatica [Unknown]
  - Vertigo [Unknown]

NARRATIVE: CASE EVENT DATE: 20160930
